FAERS Safety Report 22849875 (Version 2)
Quarter: 2024Q3

REPORT INFORMATION
  Report Type: Spontaneous
  Country: US (occurrence: None)
  Receive Date: 20230822
  Receipt Date: 20240823
  Transmission Date: 20241017
  Serious: Yes (Hospitalization, Other)
  Sender: EMMAUS LIFE SCIENCES
  Company Number: US-Emmaus Medical, Inc.-EMM202210-000258

PATIENT
  Age: 11 Year
  Sex: Female
  Weight: 61.235 kg

DRUGS (3)
  1. ENDARI [Suspect]
     Active Substance: GLUTAMINE
     Indication: Sickle cell disease
     Dosage: 20 G
     Route: 048
     Dates: start: 20211201
  2. ENDARI [Suspect]
     Active Substance: GLUTAMINE
     Dosage: 10 G
     Route: 048
     Dates: start: 20221025
  3. OXBRYTA [Concomitant]
     Active Substance: VOXELOTOR
     Indication: Product used for unknown indication
     Dosage: UNKNOWN
     Route: 065

REACTIONS (5)
  - Sickle cell anaemia with crisis [Not Recovered/Not Resolved]
  - Hospitalisation [Unknown]
  - Viral sinusitis [Recovered/Resolved]
  - Infectious mononucleosis [Unknown]
  - Product dose omission issue [Unknown]

NARRATIVE: CASE EVENT DATE: 20220101
